FAERS Safety Report 11851660 (Version 1)
Quarter: 2015Q4

REPORT INFORMATION
  Report Type: Spontaneous
  Country: US (occurrence: US)
  Receive Date: 20151218
  Receipt Date: 20151218
  Transmission Date: 20160305
  Serious: Yes (Other)
  Sender: FDA-Public Use
  Company Number: CHPA2015US014708

PATIENT
  Age: 78 Year
  Sex: Female

DRUGS (4)
  1. PREVACID [Suspect]
     Active Substance: LANSOPRAZOLE
     Dosage: 1 DF, QD
     Route: 048
     Dates: start: 20151203
  2. TYLENOL [Suspect]
     Active Substance: ACETAMINOPHEN
     Indication: PRODUCT USED FOR UNKNOWN INDICATION
     Dosage: EMPTY STOMACH
     Route: 048
     Dates: start: 20151203
  3. VYTORIN [Concomitant]
     Active Substance: EZETIMIBE\SIMVASTATIN
     Indication: BLOOD CHOLESTEROL
     Dosage: UNK
     Route: 065
  4. PREVACID [Suspect]
     Active Substance: LANSOPRAZOLE
     Indication: GASTROOESOPHAGEAL REFLUX DISEASE
     Dosage: 2 DF, QD
     Route: 048
     Dates: start: 2014, end: 20151202

REACTIONS (7)
  - Off label use [Unknown]
  - Incorrect dose administered [Unknown]
  - Abdominal discomfort [Not Recovered/Not Resolved]
  - Hiatus hernia [Unknown]
  - Concomitant disease aggravated [Unknown]
  - Burning sensation [Unknown]
  - Back disorder [Not Recovered/Not Resolved]

NARRATIVE: CASE EVENT DATE: 2015
